FAERS Safety Report 13737232 (Version 1)
Quarter: 2017Q3

REPORT INFORMATION
  Report Type: Spontaneous
  Country: US (occurrence: US)
  Receive Date: 20170710
  Receipt Date: 20170710
  Transmission Date: 20171127
  Serious: No
  Sender: FDA-Public Use
  Company Number: US-SAOL THERAPEUTICS-2016SAO00192

PATIENT
  Age: 59 Year
  Sex: Female

DRUGS (12)
  1. DILAUDID [Suspect]
     Active Substance: HYDROMORPHONE HYDROCHLORIDE
     Indication: PAIN
     Dosage: 4.103 MG, \DAY
     Route: 037
     Dates: start: 20160617, end: 20160720
  2. DILAUDID [Suspect]
     Active Substance: HYDROMORPHONE HYDROCHLORIDE
     Dosage: 4.409 MG, \DAY
     Route: 037
     Dates: start: 20160720
  3. FENTANYL. [Suspect]
     Active Substance: FENTANYL
     Dosage: 70.54 ?G, \DAY
     Route: 037
     Dates: start: 20160720
  4. DILAUDID [Suspect]
     Active Substance: HYDROMORPHONE HYDROCHLORIDE
     Dosage: 5.292 MG, \DAY
     Route: 037
     Dates: start: 20160617, end: 20160720
  5. BACLOFEN. [Suspect]
     Active Substance: BACLOFEN
     Dosage: 22.39 ?G, \DAY
     Route: 037
     Dates: start: 20160720
  6. FENTANYL. [Suspect]
     Active Substance: FENTANYL
     Dosage: 84.67 ?G, \DAY
     Route: 037
     Dates: start: 20160617, end: 20160720
  7. FENTANYL. [Suspect]
     Active Substance: FENTANYL
     Dosage: 89.56 ?G, \DAY
     Route: 037
     Dates: start: 20160720
  8. BACLOFEN. [Suspect]
     Active Substance: BACLOFEN
     Dosage: 21.17 ?G, \DAY
     Route: 037
     Dates: start: 20160617, end: 20160720
  9. FENTANYL. [Suspect]
     Active Substance: FENTANYL
     Indication: PAIN
     Dosage: 65.64 ?G, \DAY
     Route: 037
     Dates: start: 20160617, end: 20160720
  10. BACLOFEN. [Suspect]
     Active Substance: BACLOFEN
     Indication: PAIN
     Dosage: 16.41 ?G, \DAY
     Route: 037
     Dates: start: 20160617, end: 20160720
  11. DILAUDID [Suspect]
     Active Substance: HYDROMORPHONE HYDROCHLORIDE
     Dosage: 5.598 MG, \DAY
     Route: 037
     Dates: start: 20160720
  12. BACLOFEN. [Suspect]
     Active Substance: BACLOFEN
     Dosage: 17.63 ?G, \DAY
     Route: 037
     Dates: start: 20160720

REACTIONS (2)
  - Medical device discomfort [Recovered/Resolved]
  - Device failure [Recovered/Resolved]

NARRATIVE: CASE EVENT DATE: 20160701
